FAERS Safety Report 7133332-7 (Version None)
Quarter: 2010Q4

REPORT INFORMATION
  Report Type: 
  Country: None (occurrence: None)
  Receive Date: 20101202
  Receipt Date: 20101122
  Transmission Date: 20110411
  Serious: Yes (Death, Other)
  Sender: FDA-Public Use
  Company Number: US-PURDUE-USA-2010-0054311

PATIENT
  Sex: Female

DRUGS (2)
  1. OXYCONTIN [Suspect]
     Indication: THROAT CANCER
     Dosage: 60 MG, BID
     Route: 048
  2. OXYCONTIN [Suspect]
     Dosage: 30 MG, QID
     Route: 048

REACTIONS (5)
  - CHEYNE-STOKES RESPIRATION [None]
  - CONVULSION [None]
  - DYSPHAGIA [None]
  - ELECTROLYTE IMBALANCE [None]
  - MALNUTRITION [None]
